FAERS Safety Report 15375846 (Version 2)
Quarter: 2018Q3

REPORT INFORMATION
  Report Type: Report from Study
  Country: US (occurrence: US)
  Receive Date: 20180912
  Receipt Date: 20180920
  Transmission Date: 20181010
  Serious: Yes (Death, Hospitalization)
  Sender: FDA-Public Use
  Company Number: US-ACTELION-A-NJ2017-154141

PATIENT
  Age: 49 Year
  Sex: Female
  Weight: 58.5 kg

DRUGS (4)
  1. ADEMPAS [Concomitant]
     Active Substance: RIOCIGUAT
  2. OPSUMIT [Suspect]
     Active Substance: MACITENTAN
     Indication: PULMONARY HYPERTENSION
     Dosage: 10 MG, QD
     Route: 048
     Dates: end: 20180911
  3. XARELTO [Concomitant]
     Active Substance: RIVAROXABAN
  4. REMODULIN [Concomitant]
     Active Substance: TREPROSTINIL
     Dosage: 101 NG/KG, PER MIN

REACTIONS (16)
  - Coronary artery bypass [Fatal]
  - Disease progression [Fatal]
  - Lung transplant [Unknown]
  - Dyspnoea [Unknown]
  - Malaise [Unknown]
  - Haemoptysis [Unknown]
  - Colonoscopy [Unknown]
  - Cerebrovascular accident [Fatal]
  - Pulmonary arterial hypertension [Fatal]
  - Headache [Unknown]
  - Right ventricular failure [Fatal]
  - Pulmonary hypertension [Unknown]
  - Hernia repair [Unknown]
  - Diarrhoea [Unknown]
  - Pneumonia [Unknown]
  - Intraventricular haemorrhage [Unknown]
